FAERS Safety Report 6998643-4 (Version None)
Quarter: 2010Q3

REPORT INFORMATION
  Report Type: 
  Country: None (occurrence: None)
  Receive Date: 20100920
  Receipt Date: 20091228
  Transmission Date: 20110219
  Serious: No
  Sender: FDA-Public Use
  Company Number: US-ASTRAZENECA-2009SE33710

PATIENT
  Sex: Female

DRUGS (2)
  1. SEROQUEL XR [Suspect]
     Indication: BIPOLAR DISORDER
     Dosage: SHE TOOK 1500MG
     Route: 048
     Dates: end: 20091223
  2. SEROQUEL XR [Suspect]
     Indication: PERSONALITY DISORDER
     Dosage: SHE TOOK 1500MG
     Route: 048
     Dates: end: 20091223

REACTIONS (6)
  - ABDOMINAL PAIN [None]
  - DRUG WITHDRAWAL SYNDROME [None]
  - FEELING ABNORMAL [None]
  - HYPERHIDROSIS [None]
  - INTENTIONAL OVERDOSE [None]
  - VOMITING [None]
